FAERS Safety Report 23821898 (Version 2)
Quarter: 2024Q2

REPORT INFORMATION
  Report Type: Spontaneous
  Country: ES (occurrence: ES)
  Receive Date: 20240506
  Receipt Date: 20240520
  Transmission Date: 20240716
  Serious: Yes (Other)
  Sender: FDA-Public Use
  Company Number: ES-JNJFOC-20240490131

PATIENT
  Age: 34 Year
  Sex: Female

DRUGS (14)
  1. TRACLEER [Suspect]
     Active Substance: BOSENTAN
     Indication: Pulmonary hypertension
     Route: 048
     Dates: start: 201011
  2. TRACLEER [Suspect]
     Active Substance: BOSENTAN
     Route: 048
     Dates: start: 201206
  3. TRACLEER [Suspect]
     Active Substance: BOSENTAN
     Route: 048
     Dates: start: 20170827
  4. TRACLEER [Suspect]
     Active Substance: BOSENTAN
     Route: 048
  5. OPSUMIT [Suspect]
     Active Substance: MACITENTAN
     Indication: Pulmonary arterial hypertension
     Dosage: OPSUMIT 10: 1 CP DAILY IN THE MORNING
     Route: 048
  6. SELEXIPAG [Suspect]
     Active Substance: SELEXIPAG
     Indication: Product used for unknown indication
     Dosage: UPTRAVI ADD: : 200: 1 CP WITH BREAKFAST AND DINNER
     Route: 048
  7. SELEXIPAG [Suspect]
     Active Substance: SELEXIPAG
     Dosage: UPTRAVI INCREASE TO: : 400: 1 CP WITH BREAKFAST AND DINNER
     Route: 048
  8. SELEXIPAG [Suspect]
     Active Substance: SELEXIPAG
     Dosage: UPTRAVI INCREASE TO: : 600: 1 CP WITH BREAKFAST AND DINNER
     Route: 048
  9. SELEXIPAG [Suspect]
     Active Substance: SELEXIPAG
     Dosage: MAINTAIN UPTRAVI AT 400MG EVERY 12 HOURS
     Route: 048
  10. SINTROM [Interacting]
     Active Substance: ACENOCOUMAROL
     Indication: Product used for unknown indication
     Route: 065
  11. TADALAFIL [Concomitant]
     Active Substance: TADALAFIL
     Dosage: TADALAFIL 20: 2 CP AFTER BREAKFAST
  12. ADALAT [Concomitant]
     Active Substance: NIFEDIPINE
     Dosage: ADALAT DELAY 20: 1 CP EVERY 12 HOURS
  13. ADALAT [Concomitant]
     Active Substance: NIFEDIPINE
     Dosage: ADALAT OROS 30: 1 DAILY CP
  14. ILOPROST [Concomitant]
     Active Substance: ILOPROST
     Indication: Pulmonary hypertension
     Dosage: 10 MG/ML: 1 NEBULIZED AMPULE 5 TIMES A DAY

REACTIONS (10)
  - Autoimmune hepatitis [Unknown]
  - Hepatotoxicity [Unknown]
  - Antiphospholipid syndrome [Unknown]
  - Headache [Recovering/Resolving]
  - Nausea [Unknown]
  - Oedema [Unknown]
  - Skin discolouration [Unknown]
  - Drug interaction [Unknown]
  - Cholelithiasis [Unknown]
  - Vomiting [Unknown]
